FAERS Safety Report 5135234-4 (Version None)
Quarter: 2006Q4

REPORT INFORMATION
  Report Type: 
  Country: None (occurrence: None)
  Receive Date: 20061026
  Receipt Date: 20061019
  Transmission Date: 20070319
  Serious: Yes (Hospitalization)
  Sender: FDA-Public Use
  Company Number: US-JNJFOC-20060402330

PATIENT
  Sex: Female
  Weight: 63.5 kg

DRUGS (8)
  1. DURAGESIC-100 [Suspect]
     Indication: PAIN
     Route: 062
  2. ZYRTEC [Concomitant]
     Indication: MULTIPLE ALLERGIES
     Route: 048
  3. ZOCOR [Concomitant]
     Indication: BLOOD CHOLESTEROL
     Route: 048
  4. PRILOSEC [Concomitant]
     Indication: GASTROINTESTINAL DISORDER
     Route: 048
  5. LEVOTHYROXINE SODIUM [Concomitant]
     Indication: THYROID DISORDER
     Route: 048
  6. CELEBREX [Concomitant]
     Indication: ARTHRITIS
     Route: 048
  7. PAXIL [Concomitant]
     Indication: DEPRESSION
     Route: 048
  8. ACTONEL [Concomitant]
     Indication: OSTEOPOROSIS
     Route: 048

REACTIONS (2)
  - FALL [None]
  - HIP FRACTURE [None]
